FAERS Safety Report 11362038 (Version 1)
Quarter: 2015Q3

REPORT INFORMATION
  Report Type: Spontaneous
  Country: US (occurrence: US)
  Receive Date: 20150810
  Receipt Date: 20150810
  Transmission Date: 20151125
  Serious: No
  Sender: FDA-Public Use
  Company Number: US-GLAXOSMITHKLINE-US2015112645

PATIENT
  Age: 38 Year
  Sex: Female

DRUGS (3)
  1. NICODERM CQ [Suspect]
     Active Substance: NICOTINE
     Indication: SMOKING CESSATION THERAPY
     Dosage: 21 MG, UNK
  2. NICORETTE FRUIT CHILL [Suspect]
     Active Substance: NICOTINE
     Indication: SMOKING CESSATION THERAPY
     Dosage: 4 MG, UNK
     Dates: start: 20150701, end: 20150706
  3. NICODERM CQ [Suspect]
     Active Substance: NICOTINE
     Indication: SMOKING CESSATION THERAPY
     Dosage: 7 MG, UNK

REACTIONS (7)
  - Somnolence [Recovered/Resolved]
  - Malaise [Recovered/Resolved]
  - Drug administration error [Unknown]
  - Dizziness [Recovered/Resolved]
  - Sleep terror [Recovered/Resolved]
  - Nicotine dependence [Unknown]
  - Dyspepsia [Recovered/Resolved]
